FAERS Safety Report 9728947 (Version 1)
Quarter: 2013Q4

REPORT INFORMATION
  Report Type: Report from Study
  Country: US (occurrence: US)
  Receive Date: 20131204
  Receipt Date: 20131204
  Transmission Date: 20140711
  Serious: Yes (Other)
  Sender: FDA-Public Use
  Company Number: US-US-EMD SERONO, INC.-7253479

PATIENT
  Age: 37 Year
  Sex: Female

DRUGS (2)
  1. REBIF [Suspect]
     Indication: MULTIPLE SCLEROSIS
     Route: 058
     Dates: start: 20111229
  2. REBIF [Suspect]
     Route: 058
     Dates: start: 2013

REACTIONS (3)
  - Device dislocation [Unknown]
  - Procedural pain [Unknown]
  - Tremor [Not Recovered/Not Resolved]
